FAERS Safety Report 9768281 (Version 2)
Quarter: 2014Q1

REPORT INFORMATION
  Report Type: Report from Study
  Country: US (occurrence: US)
  Receive Date: 20131217
  Receipt Date: 20140108
  Transmission Date: 20141002
  Serious: Yes (Hospitalization)
  Sender: FDA-Public Use
  Company Number: US-PURDUE-USA-2013-0109502

PATIENT
  Sex: Female
  Weight: 46.26 kg

DRUGS (2)
  1. OXY CR TAB [Suspect]
     Indication: PAIN
     Dosage: UNK
     Route: 048
     Dates: start: 201308
  2. OXY CR TAB [Suspect]
     Dosage: 40 MG, BID
     Route: 048
     Dates: start: 201311, end: 20131209

REACTIONS (7)
  - Upper limb fracture [Unknown]
  - Humerus fracture [Unknown]
  - Ulna fracture [Unknown]
  - Wrist fracture [Unknown]
  - Limb injury [Unknown]
  - Pain [Unknown]
  - Amnesia [Unknown]
